FAERS Safety Report 18925645 (Version 1)
Quarter: 2021Q1

REPORT INFORMATION
  Report Type: Spontaneous
  Country: FR (occurrence: FR)
  Receive Date: 20210222
  Receipt Date: 20210222
  Transmission Date: 20210420
  Serious: Yes (Hospitalization)
  Sender: FDA-Public Use
  Company Number: FR-ASTRAZENECA-2021A060682

PATIENT
  Sex: Female

DRUGS (4)
  1. OMEPRAZOLE. [Suspect]
     Active Substance: OMEPRAZOLE
     Indication: PROPHYLAXIS
     Dosage: 80.0MG UNKNOWN
     Route: 064
     Dates: end: 20210202
  2. AZACTAM [Suspect]
     Active Substance: AZTREONAM
     Indication: PROPHYLAXIS
     Dosage: 6.0G UNKNOWN
     Route: 064
     Dates: start: 20210127, end: 20210202
  3. CREON [Suspect]
     Active Substance: PANCRELIPASE AMYLASE\PANCRELIPASE LIPASE\PANCRELIPASE PROTEASE
     Indication: PANCREATIC FAILURE
     Dosage: 11 TO 16GEL PER DAY
     Route: 064
     Dates: end: 20210202
  4. CEFTAZIDIME. [Suspect]
     Active Substance: CEFTAZIDIME
     Indication: INFECTION
     Route: 064
     Dates: start: 20200119, end: 20210127

REACTIONS (1)
  - Pulmonary haemorrhage [Not Recovered/Not Resolved]

NARRATIVE: CASE EVENT DATE: 20210202
